FAERS Safety Report 7611710-7 (Version None)
Quarter: 2011Q3

REPORT INFORMATION
  Report Type: 
  Country: None (occurrence: None)
  Receive Date: 20110715
  Receipt Date: 20110707
  Transmission Date: 20111222
  Serious: Yes (Other)
  Sender: FDA-Public Use
  Company Number: JP-MERCK-1107USA01469

PATIENT
  Age: 81 Year
  Sex: Male

DRUGS (5)
  1. MEXITIL [Concomitant]
     Route: 065
     Dates: start: 20081101
  2. MUCOSTA [Concomitant]
     Route: 065
     Dates: start: 20010101
  3. JANUVIA [Suspect]
     Indication: TYPE 2 DIABETES MELLITUS
     Route: 048
     Dates: start: 20110428, end: 20110628
  4. LIVALO [Concomitant]
     Route: 065
     Dates: start: 20081101
  5. AMARYL [Concomitant]
     Route: 065
     Dates: start: 20081101

REACTIONS (1)
  - CARDIAC FAILURE [None]
